FAERS Safety Report 7492062-2 (Version None)
Quarter: 2011Q2

REPORT INFORMATION
  Report Type: 
  Country: None (occurrence: None)
  Receive Date: 20110519
  Receipt Date: 20110506
  Transmission Date: 20111010
  Serious: Yes (Disabling, Congenital Anomaly)
  Sender: FDA-Public Use
  Company Number: US-UCBSA-032353

PATIENT
  Age: 24 Year
  Sex: Female
  Weight: 59 kg

DRUGS (3)
  1. TOPIRAMATE [Concomitant]
     Indication: EPILEPSY
     Route: 048
     Dates: start: 20060910
  2. PANCRELIPASE [Concomitant]
     Dosage: 30000 UNITS-8000 UNITS-30000 UNITS DAILY
     Route: 048
     Dates: start: 20090703
  3. LACOSAMIDE [Suspect]
     Indication: EPILEPSY
     Route: 048
     Dates: start: 20100912

REACTIONS (3)
  - AMNESIA [None]
  - MYALGIA [None]
  - ARTHRALGIA [None]
